FAERS Safety Report 4980278-6 (Version None)
Quarter: 2006Q2

REPORT INFORMATION
  Report Type: 
  Country: None (occurrence: None)
  Receive Date: 20060420
  Receipt Date: 20060420
  Transmission Date: 20061013
  Serious: Yes (Other)
  Sender: FDA-Public Use
  Company Number: None

PATIENT
  Age: 50 Year
  Sex: Female
  Weight: 111.1 kg

DRUGS (7)
  1. TORADOL [Suspect]
  2. IBUPROFEN [Concomitant]
  3. NORTRIPTYLINE HCL [Concomitant]
  4. CYCLOBENZAPRINE HCL [Concomitant]
  5. IBUPROFEN [Concomitant]
  6. PAROXETINE HCL [Concomitant]
  7. GABAPENTIN [Concomitant]

REACTIONS (1)
  - PRURITUS [None]
